FAERS Safety Report 17835942 (Version 1)
Quarter: 2020Q2

REPORT INFORMATION
  Report Type: Spontaneous
  Country: NL (occurrence: NL)
  Receive Date: 20200528
  Receipt Date: 20200528
  Transmission Date: 20200714
  Serious: Yes (Other)
  Sender: FDA-Public Use
  Company Number: NL-MYLANLABS-2020M1052438

PATIENT
  Sex: Male
  Weight: 90 kg

DRUGS (2)
  1. PROPRANOLOL [Suspect]
     Active Substance: PROPRANOLOL HYDROCHLORIDE
     Indication: AGGRESSION
     Dosage: 40 MILLIGRAM, QD, 1 DD 2 ST, 20 MG
     Dates: start: 202002
  2. LEPONEX [Suspect]
     Active Substance: CLOZAPINE
     Indication: AGGRESSION
     Dosage: 500 MILLIGRAM, QD, 1 DD 5 ST, 100 MG
     Dates: start: 2018

REACTIONS (3)
  - Drug level increased [Not Recovered/Not Resolved]
  - Therapeutic response unexpected [Not Recovered/Not Resolved]
  - Dependence [Unknown]
